FAERS Safety Report 5865967-3 (Version None)
Quarter: 2008Q3

REPORT INFORMATION
  Report Type: 
  Country: None (occurrence: None)
  Receive Date: 20080829
  Receipt Date: 20080819
  Transmission Date: 20090109
  Serious: Yes (Hospitalization, Disabling)
  Sender: FDA-Public Use
  Company Number: FR-PFIZER INC-2008050782

PATIENT
  Sex: Male

DRUGS (7)
  1. LYRICA [Suspect]
     Indication: NEURALGIA
  2. DURAGESIC-100 [Concomitant]
  3. ACETAMINOPHEN [Concomitant]
  4. MORPHINE [Concomitant]
  5. LAROXYL [Concomitant]
  6. RIVOTRIL [Concomitant]
  7. ALL OTHER THERAPEUTIC PRODUCTS [Concomitant]

REACTIONS (2)
  - AMPUTATION [None]
  - MYALGIA [None]
